FAERS Safety Report 14426491 (Version 7)
Quarter: 2025Q3

REPORT INFORMATION
  Report Type: Spontaneous
  Country: US (occurrence: US)
  Receive Date: 20180123
  Receipt Date: 20250923
  Transmission Date: 20251021
  Serious: Yes (Hospitalization, Disabling, Other)
  Sender: ROCHE
  Company Number: US-ROCHE-2046614

PATIENT
  Age: 47 Year
  Sex: Female
  Weight: 70.31 kg

DRUGS (11)
  1. OCREVUS [Suspect]
     Active Substance: OCRELIZUMAB
     Indication: Multiple sclerosis
     Route: 042
     Dates: start: 20170510
  2. OCREVUS [Suspect]
     Active Substance: OCRELIZUMAB
     Route: 042
     Dates: start: 20171113
  3. OCREVUS [Suspect]
     Active Substance: OCRELIZUMAB
     Route: 042
     Dates: start: 20170426
  4. BENADRYL [Concomitant]
     Active Substance: DIPHENHYDRAMINE HYDROCHLORIDE
  5. MODAFINIL [Concomitant]
     Active Substance: MODAFINIL
     Indication: Multiple sclerosis
     Dosage: FOR MORE THAT 2 YEARS
     Route: 048
  6. NALTREXONE [Concomitant]
     Active Substance: NALTREXONE
     Indication: Multiple sclerosis
     Route: 048
  7. FLONASE [Concomitant]
     Active Substance: FLUTICASONE PROPIONATE
     Indication: Hypersensitivity
     Dosage: 1 TO 2 SPRAY
     Route: 045
  8. DRONABINOL [Concomitant]
     Active Substance: DRONABINOL
  9. CANNABIDIOL\HERBALS [Concomitant]
     Active Substance: CANNABIDIOL\HERBALS
  10. HUMAN IMMUNOGLOBULIN G [Concomitant]
     Active Substance: HUMAN IMMUNOGLOBULIN G
  11. GILENYA [Concomitant]
     Active Substance: FINGOLIMOD HYDROCHLORIDE

REACTIONS (19)
  - Throat irritation [Unknown]
  - Dysphagia [Unknown]
  - Product label issue [Unknown]
  - Circumstance or information capable of leading to medication error [Unknown]
  - Infusion related reaction [Unknown]
  - Pain [Recovered/Resolved]
  - Oropharyngeal pain [Recovered/Resolved]
  - Dyspnoea [Recovered/Resolved]
  - Throat tightness [Recovered/Resolved]
  - Dysphonia [Recovered/Resolved]
  - Oropharyngeal pain [Not Recovered/Not Resolved]
  - Odynophagia [Unknown]
  - Subcutaneous abscess [Unknown]
  - Neuralgia [Recovering/Resolving]
  - Vocal cord paralysis [Recovering/Resolving]
  - Glossopharyngeal neuralgia [Recovering/Resolving]
  - Blood immunoglobulin M decreased [Not Recovered/Not Resolved]
  - Blood immunoglobulin A decreased [Not Recovered/Not Resolved]
  - Blood immunoglobulin G decreased [Not Recovered/Not Resolved]

NARRATIVE: CASE EVENT DATE: 20170426
